FAERS Safety Report 19746029 (Version 2)
Quarter: 2021Q4

REPORT INFORMATION
  Report Type: Spontaneous
  Country: US (occurrence: US)
  Receive Date: 20210825
  Receipt Date: 20211007
  Transmission Date: 20220303
  Serious: No
  Sender: FDA-Public Use
  Company Number: 2021A669032

PATIENT
  Age: 881 Month
  Sex: Female
  Weight: 66.2 kg

DRUGS (1)
  1. BYDUREON BCISE [Suspect]
     Active Substance: EXENATIDE
     Indication: Type 2 diabetes mellitus
     Route: 058
     Dates: start: 20210706

REACTIONS (6)
  - Injection site bruising [Recovered/Resolved]
  - Injection site extravasation [Unknown]
  - Injection site nodule [Recovering/Resolving]
  - Device use issue [Unknown]
  - Incorrect dose administered by device [Unknown]
  - Device issue [Unknown]

NARRATIVE: CASE EVENT DATE: 20210701
